FAERS Safety Report 6829559-1 (Version None)
Quarter: 2010Q3

REPORT INFORMATION
  Report Type: 
  Country: None (occurrence: None)
  Receive Date: 20100709
  Receipt Date: 20070522
  Transmission Date: 20110219
  Serious: No
  Sender: FDA-Public Use
  Company Number: US-PFIZER INC-2007006644

PATIENT
  Sex: Female
  Weight: 78.47 kg

DRUGS (7)
  1. VARENICLINE [Suspect]
     Indication: SMOKING CESSATION THERAPY
     Route: 048
     Dates: start: 20061106
  2. VARENICLINE [Suspect]
     Indication: NICOTINE DEPENDENCE
  3. CRESTOR [Concomitant]
     Dates: start: 20040101
  4. MULTI-VITAMINS [Concomitant]
  5. CITRACAL [Concomitant]
  6. VITAMIN C [Concomitant]
  7. VITAMIN E [Concomitant]

REACTIONS (4)
  - BURSITIS [None]
  - DRUG WITHDRAWAL SYNDROME [None]
  - INSOMNIA [None]
  - MUSCULOSKELETAL DISCOMFORT [None]
